FAERS Safety Report 12492941 (Version 2)
Quarter: 2016Q3

REPORT INFORMATION
  Report Type: Spontaneous
  Country: US (occurrence: US)
  Receive Date: 20160623
  Receipt Date: 20160708
  Transmission Date: 20161109
  Serious: Yes (Death, Hospitalization)
  Sender: FDA-Public Use
  Company Number: US-ACTELION-A-US2016-137881

PATIENT
  Age: 75 Year
  Sex: Male

DRUGS (12)
  1. VICTOZA [Concomitant]
     Active Substance: LIRAGLUTIDE
  2. TUDORZA PRESSAIR [Concomitant]
     Active Substance: ACLIDINIUM BROMIDE
  3. HUMULIN NOS [Concomitant]
     Active Substance: INSULIN HUMAN
  4. BUMETANIDE. [Concomitant]
     Active Substance: BUMETANIDE
  5. DIOVAN [Concomitant]
     Active Substance: VALSARTAN
  6. PRAVASTATIN. [Concomitant]
     Active Substance: PRAVASTATIN
  7. FLUTICASONE [Concomitant]
     Active Substance: FLUTICASONE\FLUTICASONE PROPIONATE
  8. TRACLEER [Suspect]
     Active Substance: BOSENTAN
     Indication: PULMONARY ARTERIAL HYPERTENSION
     Dosage: 125 MG, BID
     Route: 048
     Dates: start: 20150714, end: 20160527
  9. TEMAZEPAM. [Concomitant]
     Active Substance: TEMAZEPAM
  10. TAMSULOSIN [Concomitant]
     Active Substance: TAMSULOSIN
  11. GABAPENTIN. [Concomitant]
     Active Substance: GABAPENTIN
  12. METOLAZONE. [Concomitant]
     Active Substance: METOLAZONE

REACTIONS (2)
  - Chronic obstructive pulmonary disease [Fatal]
  - Cardiac arrest [Fatal]
